FAERS Safety Report 10102596 (Version 2)
Quarter: 2014Q2

REPORT INFORMATION
  Report Type: Spontaneous
  Country: DE (occurrence: DE)
  Receive Date: 20140424
  Receipt Date: 20140424
  Transmission Date: 20141212
  Serious: Yes (Other)
  Sender: FDA-Public Use
  Company Number: DE-DSJP-DSM-2013-00988

PATIENT
  Sex: 0

DRUGS (3)
  1. VOTUM PLUS 20 MG / 12,5 MG [Suspect]
     Indication: HYPERTENSION
     Dosage: 20/12.5 MG
     Route: 048
     Dates: start: 2010, end: 201309
  2. VOTUM PLUS 20 MG / 12,5 MG [Suspect]
     Dosage: 40/12.5 MG
     Route: 048
     Dates: start: 201309
  3. ASS [Concomitant]
     Indication: THROMBOSIS PROPHYLAXIS
     Route: 065

REACTIONS (4)
  - Hepatic steatosis [Not Recovered/Not Resolved]
  - Hepatomegaly [Not Recovered/Not Resolved]
  - Hepatitis [Not Recovered/Not Resolved]
  - Drug ineffective [Not Recovered/Not Resolved]
